FAERS Safety Report 4283999-6 (Version None)
Quarter: 2004Q1

REPORT INFORMATION
  Report Type: 
  Country: None (occurrence: None)
  Receive Date: 20040130
  Receipt Date: 20040112
  Transmission Date: 20041129
  Serious: Yes (Other)
  Sender: FDA-Public Use
  Company Number: US_030796258

PATIENT
  Age: 42 Year
  Sex: Female
  Weight: 136 kg

DRUGS (8)
  1. HUMULIN N [Suspect]
     Indication: DIABETES MELLITUS
     Dosage: 42 U/DAY
     Dates: start: 19990101
  2. HUMALOG HUMAN INSULIN (RDNA) 25% LISPRO, 75% NPH [Suspect]
     Indication: DIABETES MELLITUS
     Dosage: 32 U / IN THE MORNING
     Dates: start: 20030805
  3. HUMULIN R [Suspect]
     Indication: DIABETES MELLITUS
     Dosage: 30 U / DAY
     Dates: start: 19990101, end: 20030805
  4. NOVOLIN N [Concomitant]
  5. NOVOLIN R [Concomitant]
  6. METFORMIN HYDROCHLORIDE [Concomitant]
  7. POTASSIUM CHLORIDE [Concomitant]
  8. MEDROXYPROGESTERONE ACTETATE [Concomitant]

REACTIONS (4)
  - BLOOD GLUCOSE FLUCTUATION [None]
  - CATARACT [None]
  - RETINAL DETACHMENT [None]
  - THYROID DISORDER [None]
